FAERS Safety Report 4412263-7 (Version None)
Quarter: 2004Q2

REPORT INFORMATION
  Report Type: 
  Country: None (occurrence: None)
  Receive Date: 20040630
  Receipt Date: 20040322
  Transmission Date: 20050107
  Serious: No
  Sender: FDA-Public Use
  Company Number: 04P-163-0254146-00

PATIENT
  Age: 35 Year
  Sex: Female

DRUGS (1)
  1. HUMIRA [Suspect]
     Indication: RHEUMATOID ARTHRITIS
     Dosage: 40 MG, 1 IN 2 WK, SUBCUTANEOUS
     Route: 058
     Dates: start: 20040315

REACTIONS (11)
  - DIARRHOEA [None]
  - DIZZINESS [None]
  - HEART RATE INCREASED [None]
  - HYPOAESTHESIA [None]
  - MYDRIASIS [None]
  - NASAL CONGESTION [None]
  - NAUSEA [None]
  - PARAESTHESIA [None]
  - PROCTALGIA [None]
  - THROAT IRRITATION [None]
  - VOMITING [None]
